FAERS Safety Report 4732845-2 (Version None)
Quarter: 2005Q3

REPORT INFORMATION
  Report Type: 
  Country: None (occurrence: None)
  Receive Date: 20050801
  Receipt Date: 20050725
  Transmission Date: 20060218
  Serious: Yes (Life-Threatening, Hospitalization)
  Sender: FDA-Public Use
  Company Number: 2005106466

PATIENT
  Age: 62 Year
  Sex: Male
  Weight: 80 kg

DRUGS (8)
  1. ATORVASTATIN (ATORVASTATIN) [Suspect]
     Indication: BLOOD CHOLESTEROL INCREASED
     Dosage: (40 MG), ORAL
     Route: 048
     Dates: start: 20050606, end: 20050627
  2. WARFARIN (WARFARIN) [Suspect]
     Indication: CEREBROVASCULAR ACCIDENT
     Dosage: ORAL
     Route: 048
     Dates: start: 19960802, end: 20050627
  3. WARFARIN (WARFARIN) [Suspect]
     Indication: CORONARY ARTERY SURGERY
     Dosage: ORAL
     Route: 048
     Dates: start: 19960802, end: 20050627
  4. AMLODIPINE [Concomitant]
  5. BISOPROLOL FUMARATE [Concomitant]
  6. ASA (ACETYLSALICYLIC ACID0 [Concomitant]
  7. ROSIGLITAZONE (ROSIGLITAZONE) [Concomitant]
  8. DIHYDROCODEINE (DIHYDROCODEINE) [Concomitant]

REACTIONS (4)
  - BLOOD CHOLESTEROL INCREASED [None]
  - CONTUSION [None]
  - DRUG INTERACTION [None]
  - INTERNATIONAL NORMALISED RATIO INCREASED [None]
